FAERS Safety Report 5309539-8 (Version None)
Quarter: 2007Q2

REPORT INFORMATION
  Report Type: 
  Country: None (occurrence: None)
  Receive Date: 20070427
  Receipt Date: 20060926
  Transmission Date: 20071010
  Serious: Yes (Hospitalization)
  Sender: FDA-Public Use
  Company Number: US-GLAXOSMITHKLINE-A0621484A

PATIENT
  Sex: Female

DRUGS (5)
  1. DEXEDRINE [Suspect]
     Indication: DEPRESSION
     Route: 048
  2. LAMICTAL [Suspect]
     Indication: DEPRESSION
     Dosage: 25MG PER DAY
     Route: 048
     Dates: start: 19900101
  3. WELLBUTRIN [Suspect]
     Indication: DEPRESSION
     Route: 048
     Dates: start: 19900101
  4. ZOLOFT [Suspect]
     Indication: DEPRESSION
     Route: 065
  5. NEURONTIN [Suspect]
     Indication: DEPRESSION
     Route: 065

REACTIONS (3)
  - DRUG HYPERSENSITIVITY [None]
  - DRUG INEFFECTIVE [None]
  - PRURITUS GENERALISED [None]
